FAERS Safety Report 8606364 (Version 2)
Quarter: 2016Q4

REPORT INFORMATION
  Report Type: Spontaneous
  Country: US (occurrence: US)
  Receive Date: 20120608
  Receipt Date: 20161123
  Transmission Date: 20170207
  Serious: No
  Sender: FDA-Public Use
  Company Number: US-ASTRAZENECA-2011SE19816

PATIENT
  Age: 80 Year
  Sex: Female
  Weight: 60.3 kg

DRUGS (18)
  1. SYMBICORT [Suspect]
     Active Substance: BUDESONIDE\FORMOTEROL FUMARATE DIHYDRATE
     Indication: CHRONIC OBSTRUCTIVE PULMONARY DISEASE
     Dosage: 80/4.5 MCG 2 PUFFS TWO TIMES A DAY
     Route: 055
  2. BENAZEPRIL HCL [Concomitant]
     Active Substance: BENAZEPRIL HYDROCHLORIDE
     Route: 048
  3. NORCO 5-325 [Concomitant]
     Route: 048
  4. PRESERVISION [Concomitant]
     Active Substance: MINERALS\VITAMINS
     Route: 048
  5. SYMBICORT [Suspect]
     Active Substance: BUDESONIDE\FORMOTEROL FUMARATE DIHYDRATE
     Indication: CHRONIC OBSTRUCTIVE PULMONARY DISEASE
     Dosage: 160/4.5 MCG 2 PUFFS TWO TIMES A DAY
     Route: 055
  6. DUONEB [Concomitant]
     Active Substance: ALBUTEROL SULFATE\IPRATROPIUM BROMIDE
     Dosage: 0.5-2.5 (3) MG/ML
  7. ASPIRIN. [Concomitant]
     Active Substance: ASPIRIN
     Route: 048
  8. CELECOXIB. [Concomitant]
     Active Substance: CELECOXIB
     Route: 048
  9. GABAPENTIN. [Concomitant]
     Active Substance: GABAPENTIN
     Route: 048
  10. PROAIR HFA108 [Concomitant]
     Dosage: 2 PUFFS EVERY 4-6 HOURS A SNEEDED
     Route: 055
  11. HYDROCHLOROTHIAZIDE. [Concomitant]
     Active Substance: HYDROCHLOROTHIAZIDE
     Route: 048
  12. SINGULAIR [Concomitant]
     Active Substance: MONTELUKAST SODIUM
     Route: 048
  13. OXYGEN. [Concomitant]
     Active Substance: OXYGEN
     Dosage: 2 L AT NIGHT
  14. OMEPRAZOLE. [Suspect]
     Active Substance: OMEPRAZOLE
     Route: 048
  15. AMLODIPINE [Concomitant]
     Active Substance: AMLODIPINE BESYLATE
     Route: 048
  16. ALBUTEROL. [Concomitant]
     Active Substance: ALBUTEROL
     Dosage: 2.5MG/3ML, 0.083%
     Route: 055
  17. FUROSEMIDE. [Concomitant]
     Active Substance: FUROSEMIDE
     Route: 048
  18. PULMICORT RESPULES [Suspect]
     Active Substance: BUDESONIDE
     Route: 055

REACTIONS (7)
  - Increased bronchial secretion [Unknown]
  - Product physical issue [Unknown]
  - Condition aggravated [Unknown]
  - Drug ineffective [Unknown]
  - Asthma [Unknown]
  - Fatigue [Unknown]
  - Dyspnoea [Unknown]
